FAERS Safety Report 12740959 (Version 2)
Quarter: 2016Q4

REPORT INFORMATION
  Report Type: Report from Study
  Country: ES (occurrence: ES)
  Receive Date: 20160914
  Receipt Date: 20161221
  Transmission Date: 20170207
  Serious: Yes (Hospitalization)
  Sender: FDA-Public Use
  Company Number: ES-ROCHE-1727609

PATIENT
  Age: 73 Year
  Sex: Male
  Weight: 58.8 kg

DRUGS (22)
  1. BEVACIZUMAB [Suspect]
     Active Substance: BEVACIZUMAB
     Indication: NON-SMALL CELL LUNG CANCER
     Dosage: MOST RECENT DOSE (894 MG) ADMINISTERED ON 11/MAR/2016, PRIOR TO BOTH EVENTS.
     Route: 042
     Dates: start: 20151127
  2. PARACETAMOL [Concomitant]
     Active Substance: ACETAMINOPHEN
     Indication: OSTEOARTHRITIS
     Route: 065
     Dates: start: 2013
  3. EBASTINA [Concomitant]
     Active Substance: EBASTINE
     Indication: RASH MACULO-PAPULAR
     Route: 065
     Dates: start: 20151209
  4. ALMAX (SPAIN) [Concomitant]
     Indication: DYSPEPSIA
     Route: 065
     Dates: start: 20160317
  5. ONDANSETRON [Concomitant]
     Active Substance: ONDANSETRON
     Indication: PREMEDICATION
     Route: 065
     Dates: start: 20160219, end: 20160219
  6. DESLORATADINE. [Concomitant]
     Active Substance: DESLORATADINE
     Indication: RASH MACULO-PAPULAR
     Route: 065
     Dates: start: 20151208
  7. PACLITAXEL. [Suspect]
     Active Substance: PACLITAXEL
     Indication: NON-SMALL CELL LUNG CANCER
     Dosage: MOST RECENT DOSE (330 MG) ADMINISTERED ON 11/MAR/2016, PRIOR TO BOTH EVENTS.
     Route: 042
     Dates: start: 20151127
  8. DEXCHLORPHENIRAMINE [Concomitant]
     Active Substance: DEXCHLORPHENIRAMINE
     Indication: RASH MACULO-PAPULAR
     Route: 065
     Dates: start: 20151209
  9. CARBOPLATIN. [Suspect]
     Active Substance: CARBOPLATIN
     Indication: NON-SMALL CELL LUNG CANCER
     Dosage: TARGET AUC = 6 MG/ML/MIN?MOST RECENT DOSE (566 MG) ADMINISTERED ON 11/MAR/2016, PRIOR TO BOTH EVENTS
     Route: 042
     Dates: start: 20151127
  10. TAMSULOSIN [Concomitant]
     Active Substance: TAMSULOSIN
     Indication: URINARY RETENTION
     Route: 065
     Dates: start: 2012
  11. DEXCHLORPHENIRAMINE [Concomitant]
     Active Substance: DEXCHLORPHENIRAMINE
     Route: 065
     Dates: start: 20160311, end: 20160311
  12. ATEZOLIZUMAB [Suspect]
     Active Substance: ATEZOLIZUMAB
     Indication: NON-SMALL CELL LUNG CANCER
     Dosage: MOST RECENT DOSE ADMINISTERED ON 11/MAR/2016, PRIOR TO BOTH EVENTS.
     Route: 042
     Dates: start: 20151127
  13. ENANTYUM [Concomitant]
     Active Substance: DEXKETOPROFEN TROMETAMOL
     Indication: OSTEOARTHRITIS
     Route: 065
     Dates: start: 2013
  14. PRIMPERAN [Concomitant]
     Active Substance: METOCLOPRAMIDE HYDROCHLORIDE
     Indication: NAUSEA
     Route: 065
     Dates: start: 20151130
  15. LORAZEPAM. [Concomitant]
     Active Substance: LORAZEPAM
     Indication: INSOMNIA
     Route: 065
     Dates: start: 20160314
  16. ONDANSETRON [Concomitant]
     Active Substance: ONDANSETRON
     Route: 065
     Dates: start: 20160311, end: 20160311
  17. CLINDAMYCIN. [Concomitant]
     Active Substance: CLINDAMYCIN
     Indication: TOOTHACHE
     Route: 065
     Dates: start: 20151208
  18. RANITIDIN [Concomitant]
     Active Substance: RANITIDINE HYDROCHLORIDE
     Route: 065
     Dates: start: 20160311, end: 20160311
  19. OMEPRAZOL [Concomitant]
     Active Substance: OMEPRAZOLE
     Indication: PROPHYLAXIS
  20. ONDANSETRON [Concomitant]
     Active Substance: ONDANSETRON
     Indication: NAUSEA
     Route: 065
     Dates: start: 20151201
  21. DEXCHLORPHENIRAMINE [Concomitant]
     Active Substance: DEXCHLORPHENIRAMINE
     Indication: PREMEDICATION
     Route: 065
     Dates: start: 20160219, end: 20160219
  22. RANITIDIN [Concomitant]
     Active Substance: RANITIDINE HYDROCHLORIDE
     Indication: PREMEDICATION
     Route: 065
     Dates: start: 20160219, end: 20160219

REACTIONS (2)
  - Hypoxia [Recovered/Resolved]
  - Pneumonitis chemical [Recovered/Resolved with Sequelae]

NARRATIVE: CASE EVENT DATE: 20160314
